FAERS Safety Report 11119983 (Version 2)
Quarter: 2015Q2

REPORT INFORMATION
  Report Type: Spontaneous
  Country: CN (occurrence: CN)
  Receive Date: 20150518
  Receipt Date: 20150526
  Transmission Date: 20150821
  Serious: Yes (Other)
  Sender: FDA-Public Use
  Company Number: CN-ELI_LILLY_AND_COMPANY-CN201505000757

PATIENT
  Age: 18 Year
  Sex: Male
  Weight: 65 kg

DRUGS (1)
  1. ZYPREXA [Suspect]
     Active Substance: OLANZAPINE
     Indication: HALLUCINATION
     Dosage: 5 MG, UNKNOWN
     Route: 048
     Dates: start: 201502, end: 201504

REACTIONS (4)
  - Agitation [Unknown]
  - Seizure [Unknown]
  - Seminal vesicular disorder [Unknown]
  - Abdominal pain [Unknown]
